FAERS Safety Report 11913218 (Version 1)
Quarter: 2016Q1

REPORT INFORMATION
  Report Type: Spontaneous
  Country: US (occurrence: None)
  Receive Date: 20160112
  Receipt Date: 20160112
  Transmission Date: 20160526
  Serious: No
  Sender: FDA-Public Use
  Company Number: None

PATIENT
  Age: 32 Year
  Sex: Male
  Weight: 62.6 kg

DRUGS (12)
  1. BENADRYL [Concomitant]
     Active Substance: DIPHENHYDRAMINE HYDROCHLORIDE
  2. NEURONTIN [Concomitant]
     Active Substance: GABAPENTIN
  3. NORCO [Concomitant]
     Active Substance: ACETAMINOPHEN\HYDROCODONE BITARTRATE
  4. LEVEMIR [Suspect]
     Active Substance: INSULIN DETEMIR
     Dosage: 35 UNITS/0.35ML (FLEX-PEN)
     Route: 058
     Dates: start: 20151220, end: 20151221
  5. LACTATED RINGER/KCL [Concomitant]
  6. MORPHIN [Concomitant]
     Active Substance: MORPHINE
  7. ASPIRIN. [Concomitant]
     Active Substance: ASPIRIN
  8. LIPITOR [Concomitant]
     Active Substance: ATORVASTATIN CALCIUM
  9. LOPERAMIDE [Concomitant]
     Active Substance: LOPERAMIDE
  10. NICOTIN PATCH [Concomitant]
  11. NOVOLOG [Suspect]
     Active Substance: INSULIN ASPART
     Dosage: 3 UNITS/0.3 ML (FLEX-PEN) ACHS SLIDING
     Route: 058
     Dates: start: 20151220, end: 20151221
  12. JUVEM [Concomitant]

REACTIONS (1)
  - Blood glucose decreased [None]

NARRATIVE: CASE EVENT DATE: 20151221
